FAERS Safety Report 5737969-9 (Version None)
Quarter: 2008Q2

REPORT INFORMATION
  Report Type: 
  Country: None (occurrence: None)
  Receive Date: 20080512
  Receipt Date: 20080512
  Transmission Date: 20081010
  Serious: Yes (Hospitalization)
  Sender: FDA-Public Use
  Company Number: None

PATIENT
  Sex: Female
  Weight: 61.3 kg

DRUGS (2)
  1. FLUOROURACIL [Suspect]
     Dosage: 13300 MG
  2. MITOMYCIN [Suspect]
     Dosage: 33 MG

REACTIONS (2)
  - ANAEMIA [None]
  - ENTERITIS [None]
